FAERS Safety Report 13454611 (Version 6)
Quarter: 2018Q2

REPORT INFORMATION
  Report Type: Spontaneous
  Country: US (occurrence: US)
  Receive Date: 20170418
  Receipt Date: 20180523
  Transmission Date: 20180711
  Serious: Yes (Other)
  Sender: FDA-Public Use
  Company Number: US-PFIZER INC-2017166464

PATIENT
  Age: 80 Year
  Sex: Female
  Weight: 73.94 kg

DRUGS (2)
  1. XELJANZ [Suspect]
     Active Substance: TOFACITINIB CITRATE
     Dosage: 5 MG, 1X/DAY (QD, 30-DAY-SUPPLY, REFILLS (UPTO 11): 6, 5 MG TABLET BY MOUTH EVERY DAY)
     Route: 048
  2. XELJANZ [Suspect]
     Active Substance: TOFACITINIB CITRATE
     Indication: RHEUMATOID ARTHRITIS
     Dosage: 5 MG, 1X/DAY (ONE 5 MG TABLET, ONCE A DAY)
     Route: 048

REACTIONS (4)
  - Product use issue [Not Recovered/Not Resolved]
  - Eye swelling [Not Recovered/Not Resolved]
  - Headache [Not Recovered/Not Resolved]
  - Macular degeneration [Not Recovered/Not Resolved]
